FAERS Safety Report 4894531-8 (Version None)
Quarter: 2006Q1

REPORT INFORMATION
  Report Type: 
  Country: None (occurrence: None)
  Receive Date: 20060127
  Receipt Date: 20060118
  Transmission Date: 20060701
  Serious: Yes (Death, Hospitalization, Other)
  Sender: FDA-Public Use
  Company Number: FR-MERCK-0601USA02422

PATIENT
  Age: 30 Year
  Sex: Male

DRUGS (3)
  1. CUPRIMINE [Suspect]
     Indication: HEPATO-LENTICULAR DEGENERATION
     Route: 048
     Dates: start: 19990101
  2. CUPRIMINE [Suspect]
     Route: 065
     Dates: start: 19990101
  3. THIAMINE [Concomitant]
     Indication: HEPATO-LENTICULAR DEGENERATION
     Route: 065

REACTIONS (13)
  - CHOLESTASIS [None]
  - DEMENTIA [None]
  - EPILEPSY [None]
  - HEPATIC CIRRHOSIS [None]
  - HEPATIC NECROSIS [None]
  - HEPATOMEGALY [None]
  - MONARTHRITIS [None]
  - NERVOUS SYSTEM DISORDER [None]
  - NEUROTOXICITY [None]
  - PULMONARY OEDEMA [None]
  - PYREXIA [None]
  - RESPIRATORY DISTRESS [None]
  - SUDDEN DEATH [None]
